FAERS Safety Report 7963280-1 (Version None)
Quarter: 2011Q4

REPORT INFORMATION
  Report Type: 
  Country: None (occurrence: None)
  Receive Date: 20111208
  Receipt Date: 20111201
  Transmission Date: 20120403
  Serious: No
  Sender: FDA-Public Use
  Company Number: US-BIOGENIDEC-2011BI045718

PATIENT
  Age: 30 Year
  Sex: Male

DRUGS (2)
  1. ANTI-DEPRESSANT (NOS) [Concomitant]
     Indication: DEPRESSION
  2. TYSABRI [Suspect]
     Indication: MULTIPLE SCLEROSIS
     Route: 042
     Dates: start: 20110926

REACTIONS (5)
  - DISTURBANCE IN ATTENTION [None]
  - MALAISE [None]
  - FEELING ABNORMAL [None]
  - ASTHENIA [None]
  - DEPRESSION [None]
